FAERS Safety Report 5163939-8 (Version None)
Quarter: 2006Q4

REPORT INFORMATION
  Report Type: 
  Country: None (occurrence: None)
  Receive Date: 20061124
  Receipt Date: 20061109
  Transmission Date: 20070319
  Serious: Yes (Death)
  Sender: FDA-Public Use
  Company Number: 2006140728

PATIENT
  Age: 82 Year
  Sex: 0

DRUGS (1)
  1. VERAPAMIL HYDROCHLORIDE [Suspect]

REACTIONS (1)
  - COMPLETED SUICIDE [None]
